FAERS Safety Report 9821831 (Version 1)
Quarter: 2014Q1

REPORT INFORMATION
  Report Type: Spontaneous
  Country: US (occurrence: US)
  Receive Date: 20140116
  Receipt Date: 20140116
  Transmission Date: 20141002
  Serious: Yes (Hospitalization, Other)
  Sender: FDA-Public Use
  Company Number: US-GILEAD-2014-0092188

PATIENT
  Sex: Female

DRUGS (3)
  1. LETAIRIS [Suspect]
     Indication: PRODUCT USED FOR UNKNOWN INDICATION
     Dosage: 5 MG, QD
     Route: 065
     Dates: start: 20070912
  2. REVATIO [Concomitant]
  3. TRACLEER                           /01587701/ [Concomitant]

REACTIONS (2)
  - Pneumonia [Recovering/Resolving]
  - Dyspnoea [Recovering/Resolving]
